FAERS Safety Report 4355775-7 (Version None)
Quarter: 2004Q2

REPORT INFORMATION
  Report Type: 
  Country: None (occurrence: None)
  Receive Date: 20040505
  Receipt Date: 20040429
  Transmission Date: 20050107
  Serious: Yes (Other)
  Sender: FDA-Public Use
  Company Number: USA-2003-0005549

PATIENT
  Age: 34 Year
  Sex: Male

DRUGS (2)
  1. OXYCONTIN [Suspect]
     Dosage: 80 MG, INTRAVENOUS
     Route: 042
  2. DILAUDID [Suspect]
     Dosage: INTRAVENOUS
     Route: 042

REACTIONS (6)
  - DRUG DEPENDENCE [None]
  - EUPHORIC MOOD [None]
  - INTENTIONAL MISUSE [None]
  - MURDER [None]
  - POLYSUBSTANCE ABUSE [None]
  - SUICIDAL IDEATION [None]
